FAERS Safety Report 5828410-6 (Version None)
Quarter: 2008Q3

REPORT INFORMATION
  Report Type: 
  Country: None (occurrence: None)
  Receive Date: 20080731
  Receipt Date: 20080723
  Transmission Date: 20090109
  Serious: Yes (Hospitalization)
  Sender: FDA-Public Use
  Company Number: US-BAYER-200828702NA

PATIENT
  Age: 79 Year
  Sex: Male
  Weight: 81 kg

DRUGS (7)
  1. SORAFENIB/PLACEBO [Suspect]
     Indication: NON-SMALL CELL LUNG CANCER
     Dosage: UNIT DOSE: 200 MG
     Route: 048
     Dates: start: 20080625
  2. TARCEVA [Suspect]
     Indication: NON-SMALL CELL LUNG CANCER
     Dates: start: 20080625
  3. AMLODIPINE [Concomitant]
     Dosage: TOTAL DAILY DOSE: 10 MG
     Route: 048
     Dates: start: 20050101
  4. LORTAB [Concomitant]
     Route: 048
     Dates: start: 20080620
  5. PROTONIX [Concomitant]
     Dosage: TOTAL DAILY DOSE: 40 MG
     Route: 048
     Dates: start: 20080719
  6. TYLENOL [Concomitant]
     Route: 048
     Dates: start: 20080719
  7. MIRALAX [Concomitant]
     Dosage: TOTAL DAILY DOSE: 30 ML
     Route: 048
     Dates: start: 20080620

REACTIONS (2)
  - ABDOMINAL DISTENSION [None]
  - ABDOMINAL PAIN [None]
